FAERS Safety Report 7552337-5 (Version None)
Quarter: 2011Q2

REPORT INFORMATION
  Report Type: 
  Country: None (occurrence: None)
  Receive Date: 20110616
  Receipt Date: 20071105
  Transmission Date: 20111010
  Serious: Yes (Other)
  Sender: FDA-Public Use
  Company Number: PHFR2007GB03246

PATIENT
  Sex: Male

DRUGS (2)
  1. CLOZAPINE [Suspect]
     Indication: SCHIZOPHRENIA
     Route: 048
     Dates: start: 19941208
  2. PHENOXYMETHYL PENICILLIN [Concomitant]
     Dosage: 500 MG, UNK
     Route: 065

REACTIONS (1)
  - ACCIDENT [None]
